FAERS Safety Report 25825860 (Version 1)
Quarter: 2025Q3

REPORT INFORMATION
  Report Type: Spontaneous
  Country: US (occurrence: US)
  Receive Date: 20250919
  Receipt Date: 20250919
  Transmission Date: 20251020
  Serious: No
  Sender: PFIZER
  Company Number: US-PFIZER INC-202500184763

PATIENT
  Age: 83 Year
  Sex: Male

DRUGS (1)
  1. VYNDAMAX [Suspect]
     Active Substance: TAFAMIDIS

REACTIONS (3)
  - Skin odour abnormal [Recovered/Resolved]
  - Skin lesion [Recovered/Resolved]
  - Skin exfoliation [Recovered/Resolved]
